FAERS Safety Report 4789397-0 (Version None)
Quarter: 2005Q3

REPORT INFORMATION
  Report Type: 
  Country: None (occurrence: None)
  Receive Date: 20050929
  Receipt Date: 20050727
  Transmission Date: 20060218
  Serious: No
  Sender: FDA-Public Use
  Company Number: 05P-163-0306863-00

PATIENT
  Age: 71 Year
  Sex: Female
  Weight: 72.5755 kg

DRUGS (4)
  1. HUMIRA [Suspect]
     Indication: RHEUMATOID ARTHRITIS
     Dosage: 40 MG, 1 IN 2 WK, SUBCUTANEOUS
     Route: 058
     Dates: start: 20040101, end: 20050616
  2. HUMAN MIXTARD [Concomitant]
  3. BLOOD PRESSURE MEDICATION [Concomitant]
  4. DIABETES MEDICATION [Concomitant]

REACTIONS (2)
  - BLOOD GLUCOSE INCREASED [None]
  - OEDEMA PERIPHERAL [None]
